FAERS Safety Report 25428175 (Version 1)
Quarter: 2025Q2

REPORT INFORMATION
  Report Type: Spontaneous
  Country: US (occurrence: US)
  Receive Date: 20250612
  Receipt Date: 20250612
  Transmission Date: 20250717
  Serious: No
  Sender: CIPLA
  Company Number: US-CIPLA LTD.-2025US07008

PATIENT

DRUGS (12)
  1. LENALIDOMIDE [Suspect]
     Active Substance: LENALIDOMIDE
     Indication: Plasma cell myeloma
     Dosage: 5 MILLIGRAM, QD (5 MG ONCE DAILY FOR 21 DAYS, 7 DAYS OFF, OF EACH 28 DAYS)
     Route: 048
     Dates: start: 20250506
  2. ONDANSETRON HYDROCHLORIDE [Concomitant]
     Active Substance: ONDANSETRON HYDROCHLORIDE
     Indication: Product used for unknown indication
     Route: 065
  3. VITAMIN D3 [Concomitant]
     Active Substance: CHOLECALCIFEROL
     Indication: Product used for unknown indication
     Route: 065
  4. ASPIRIN [Concomitant]
     Active Substance: ASPIRIN
     Indication: Product used for unknown indication
     Route: 065
  5. DARZALEX [Concomitant]
     Active Substance: DARATUMUMAB
     Indication: Product used for unknown indication
     Route: 065
  6. TYLENOL [Concomitant]
     Active Substance: ACETAMINOPHEN
     Indication: Product used for unknown indication
     Route: 065
  7. SENOKOT [Concomitant]
     Active Substance: SENNOSIDES
     Indication: Product used for unknown indication
     Route: 065
  8. DEXAMETHASONE [Concomitant]
     Active Substance: DEXAMETHASONE
     Indication: Product used for unknown indication
     Route: 065
  9. REVLIMID [Concomitant]
     Active Substance: LENALIDOMIDE
     Indication: Product used for unknown indication
     Dosage: 5 MILLIGRAM, QD (TAKE 1 CAPSULE BY MOUTH ONCE DAILY X 21 DAYS, OFF X 7 AT DAYS)
     Route: 048
     Dates: start: 2025
  10. REVLIMID [Concomitant]
     Active Substance: LENALIDOMIDE
     Dosage: 5 MILLIGRAM, QD (TAKE 1 CAPSULE BY MOUTH ONCE DAILY X 14 DAYS, OFF X 14 AT DAYS)
     Route: 048
     Dates: start: 2025
  11. REVLIMID [Concomitant]
     Active Substance: LENALIDOMIDE
     Dosage: 5 MILLIGRAM, QD (TAKE 1 CAPSULE BY MOUTH ONCE DAILY X 21 DAYS, OFF X 7 AT DAYS FOR 28 DAYS)
     Route: 048
     Dates: start: 2025
  12. REVLIMID [Concomitant]
     Active Substance: LENALIDOMIDE
     Dosage: 5 MILLIGRAM, QD (TAKE 1 CAPSULE BY MOUTH ONCE DAILY X 21 DAYS, OFF X 7 AT DAYS FOR 28 DAYS)
     Route: 048
     Dates: start: 2025

REACTIONS (3)
  - Confusional state [Not Recovered/Not Resolved]
  - Balance disorder [Not Recovered/Not Resolved]
  - Fatigue [Not Recovered/Not Resolved]

NARRATIVE: CASE EVENT DATE: 20250506
